FAERS Safety Report 9282821 (Version 1)
Quarter: 2013Q2

REPORT INFORMATION
  Report Type: Report from Study
  Country: ID (occurrence: ID)
  Receive Date: 20130510
  Receipt Date: 20130510
  Transmission Date: 20140414
  Serious: Yes (Death, Other)
  Sender: FDA-Public Use
  Company Number: PHHY2013ID046075

PATIENT
  Age: 47 Year
  Sex: Female

DRUGS (1)
  1. GLIVEC [Suspect]
     Indication: GASTROINTESTINAL STROMAL TUMOUR
     Dosage: 100 MG, 6QD
     Route: 048
     Dates: end: 20111209

REACTIONS (3)
  - Death [Fatal]
  - Metastasis [Unknown]
  - Drug resistance [Unknown]
